FAERS Safety Report 9700391 (Version 1)
Quarter: 2013Q4

REPORT INFORMATION
  Report Type: Spontaneous
  Country: CA (occurrence: None)
  Receive Date: 20131119
  Receipt Date: 20131119
  Transmission Date: 20140711
  Serious: Yes (Hospitalization)
  Sender: FDA-Public Use
  Company Number: 2013P1020915

PATIENT
  Age: 19 Year
  Sex: Male

DRUGS (4)
  1. ERYTHROMYCIN [Suspect]
     Indication: PROPHYLAXIS
     Route: 048
  2. CODEINE PHOSPHATE [Suspect]
  3. ACETAMINOPHEN [Concomitant]
  4. CAFFEINE [Concomitant]

REACTIONS (3)
  - Post procedural complication [None]
  - Inhibitory drug interaction [None]
  - Mania [None]
